FAERS Safety Report 6484209-1 (Version None)
Quarter: 2009Q4

REPORT INFORMATION
  Report Type: 
  Country: None (occurrence: None)
  Receive Date: 20091209
  Receipt Date: 20091201
  Transmission Date: 20100525
  Serious: Yes (Other)
  Sender: FDA-Public Use
  Company Number: A0832494A

PATIENT
  Age: 45 Year
  Sex: Female

DRUGS (5)
  1. VOTRIENT [Suspect]
     Indication: RENAL CELL CARCINOMA
     Dosage: 4TAB PER DAY
     Route: 048
     Dates: start: 20091128
  2. SYNTHROID [Concomitant]
  3. ZOFRAN [Concomitant]
  4. DARVOCET [Concomitant]
  5. XANAX [Concomitant]

REACTIONS (4)
  - DIARRHOEA [None]
  - HALLUCINATION [None]
  - NIGHTMARE [None]
  - VOMITING [None]
